FAERS Safety Report 19737745 (Version 2)
Quarter: 2021Q3

REPORT INFORMATION
  Report Type: Report from Study
  Country: US (occurrence: US)
  Receive Date: 20210824
  Receipt Date: 20210825
  Transmission Date: 20211014
  Serious: No
  Sender: FDA-Public Use
  Company Number: NVSC2021US171053

PATIENT
  Age: 49 Year
  Sex: Female
  Weight: 81.6 kg

DRUGS (5)
  1. TREPROSTINIL. [Suspect]
     Active Substance: TREPROSTINIL
     Indication: PULMONARY ARTERIAL HYPERTENSION
     Dosage: 35 NG/KG/MIN
     Route: 041
     Dates: start: 20210719
  2. TREPROSTINIL. [Suspect]
     Active Substance: TREPROSTINIL
     Dosage: 0.036 MICROGRAM/KILOGRAM
     Route: 041
     Dates: start: 202107, end: 202107
  3. TREPROSTINIL. [Suspect]
     Active Substance: TREPROSTINIL
     Dosage: 5 MG, Q8H
     Route: 048
  4. OPSUMIT [Concomitant]
     Active Substance: MACITENTAN
     Indication: PRODUCT USED FOR UNKNOWN INDICATION
     Route: 065
  5. TREPROSTINIL. [Suspect]
     Active Substance: TREPROSTINIL
     Dosage: 0.04 MICROGRAM/KILOGRAM
     Route: 041
     Dates: start: 202107

REACTIONS (10)
  - Toothache [Unknown]
  - Pain in jaw [Unknown]
  - Hyperhidrosis [Unknown]
  - Abdominal discomfort [Unknown]
  - Oedema [Unknown]
  - Pain in extremity [Unknown]
  - Fatigue [Unknown]
  - Pyrexia [Recovered/Resolved]
  - Peripheral swelling [Unknown]
  - Joint swelling [Unknown]

NARRATIVE: CASE EVENT DATE: 20210723
